FAERS Safety Report 5781666-0 (Version None)
Quarter: 2008Q2

REPORT INFORMATION
  Report Type: 
  Country: None (occurrence: None)
  Receive Date: 20080623
  Receipt Date: 20070507
  Transmission Date: 20081010
  Serious: No
  Sender: FDA-Public Use
  Company Number: US-ASTRAZENECA-2007UW09740

PATIENT
  Age: 64 Year
  Sex: Male
  Weight: 120.2 kg

DRUGS (4)
  1. RHINOCORT [Suspect]
     Indication: SEASONAL ALLERGY
     Route: 045
  2. HYDROCHLOROTHIAZIDE [Concomitant]
  3. BP MED [Concomitant]
  4. ASTHMA INHALERS [Concomitant]

REACTIONS (1)
  - FLUSHING [None]
